FAERS Safety Report 17840985 (Version 1)
Quarter: 2020Q2

REPORT INFORMATION
  Report Type: Report from Study
  Country: None (occurrence: US)
  Receive Date: 20200529
  Receipt Date: 20200529
  Transmission Date: 20200714
  Serious: Yes (Hospitalization)
  Sender: FDA-Public Use
  Company Number: US-ABBVIE-19K-163-3158429-00

PATIENT
  Sex: Male

DRUGS (2)
  1. IMBRUVICA [Suspect]
     Active Substance: IBRUTINIB
     Indication: WALDENSTROM^S MACROGLOBULINAEMIA
     Route: 048
     Dates: start: 201905
  2. IMBRUVICA [Suspect]
     Active Substance: IBRUTINIB
     Route: 048
     Dates: start: 20190508

REACTIONS (8)
  - Somnolence [Unknown]
  - Fatigue [Unknown]
  - Increased tendency to bruise [Recovering/Resolving]
  - Stent placement [Recovering/Resolving]
  - Dry mouth [Unknown]
  - Dry eye [Unknown]
  - Middle insomnia [Unknown]
  - Muscle spasms [Recovering/Resolving]
